FAERS Safety Report 7141578-7 (Version None)
Quarter: 2010Q4

REPORT INFORMATION
  Report Type: 
  Country: None (occurrence: None)
  Receive Date: 20101207
  Receipt Date: 20101124
  Transmission Date: 20110411
  Serious: Yes (Life-Threatening, Other)
  Sender: FDA-Public Use
  Company Number: GB-ELI_LILLY_AND_COMPANY-GB201011006481

PATIENT
  Age: 10 Year
  Sex: Male

DRUGS (2)
  1. STRATTERA [Suspect]
     Indication: ATTENTION DEFICIT/HYPERACTIVITY DISORDER
     Dosage: 18 MG, UNK
     Dates: start: 20101106, end: 20101107
  2. METHYLPHENIDATE HCL [Concomitant]

REACTIONS (6)
  - AGGRESSION [None]
  - DYSURIA [None]
  - JAUNDICE [None]
  - NIGHTMARE [None]
  - PERIPHERAL COLDNESS [None]
  - SUICIDAL IDEATION [None]
